FAERS Safety Report 15130969 (Version 6)
Quarter: 2021Q1

REPORT INFORMATION
  Report Type: Spontaneous
  Country: GR (occurrence: GR)
  Receive Date: 20180711
  Receipt Date: 20210208
  Transmission Date: 20210419
  Serious: Yes (Hospitalization, Other)
  Sender: FDA-Public Use
  Company Number: GR-MYLANLABS-2018M1049251

PATIENT
  Age: 44 Year
  Sex: Female
  Weight: 72 kg

DRUGS (18)
  1. BRIVIR [Interacting]
     Active Substance: BRIVUDINE
     Indication: COLORECTAL CANCER
     Dosage: 7.5 MG/KG, UNK
     Route: 065
  2. BRIVIR [Interacting]
     Active Substance: BRIVUDINE
     Indication: HERPES ZOSTER
     Dosage: 125 MG, QD (ON DAYS 8?14 OF THE SIXTH CYCLE)
     Route: 065
  3. BEVACIZUMAB. [Concomitant]
     Active Substance: BEVACIZUMAB
     Indication: COLON CANCER METASTATIC
  4. TEICOPLANIN [Concomitant]
     Active Substance: TEICOPLANIN
     Indication: ANTIFUNGAL TREATMENT
     Dosage: UNK
  5. OXALIPLATIN. [Concomitant]
     Active Substance: OXALIPLATIN
     Indication: COLON CANCER METASTATIC
     Dosage: UNK
  6. CAPECITABINE. [Suspect]
     Active Substance: CAPECITABINE
     Indication: COLORECTAL CANCER
     Dosage: 1250 MG/M2, QD
     Route: 065
     Dates: end: 20171128
  7. CAPECITABINE. [Interacting]
     Active Substance: CAPECITABINE
     Indication: COLORECTAL CANCER METASTATIC
     Dosage: 1250 MG/M2, QD
     Dates: start: 20171206, end: 20171210
  8. BRIVIR [Interacting]
     Active Substance: BRIVUDINE
     Dosage: 125 MILLIGRAM (1 YEAR)
     Dates: end: 20171229
  9. BEVACIZUMAB. [Concomitant]
     Active Substance: BEVACIZUMAB
     Indication: COLORECTAL CANCER
     Dosage: 7.5 MG/KG, 21 DAYS
     Route: 065
  10. PREDNISONE. [Concomitant]
     Active Substance: PREDNISONE
     Indication: ANTIFUNGAL TREATMENT
     Dosage: 1 MG/KG, UNK
  11. METRONIDAZOLE. [Concomitant]
     Active Substance: METRONIDAZOLE
     Indication: CLOSTRIDIUM DIFFICILE INFECTION
     Dosage: UNK
     Route: 048
  12. FLUOROURACIL. [Interacting]
     Active Substance: FLUOROURACIL
     Indication: COLON CANCER METASTATIC
     Dosage: UNK
  13. FLUCONAZOLE. [Concomitant]
     Active Substance: FLUCONAZOLE
     Indication: ANTIFUNGAL TREATMENT
     Dosage: UNK
  14. FILGRASTIM [Concomitant]
     Active Substance: FILGRASTIM
     Indication: PRODUCT USED FOR UNKNOWN INDICATION
     Dosage: UNK
  15. CAPECITABINE. [Interacting]
     Active Substance: CAPECITABINE
     Indication: COLON CANCER METASTATIC
  16. BRIVIR [Interacting]
     Active Substance: BRIVUDINE
     Dosage: 125 MILLIGRAM (1 YEAR)
     Dates: start: 20171203, end: 20171210
  17. BEVACIZUMAB. [Concomitant]
     Active Substance: BEVACIZUMAB
     Indication: COLORECTAL CANCER METASTATIC
     Dosage: 6 CYCLES
  18. FOLINIC ACID [Concomitant]
     Active Substance: LEUCOVORIN
     Indication: COLON CANCER METASTATIC
     Dosage: UNK

REACTIONS (18)
  - Oesophagitis [Recovered/Resolved]
  - Rash maculo-papular [Recovered/Resolved]
  - Neutropenia [Recovered/Resolved]
  - Medication error [Recovered/Resolved]
  - Herpes zoster [Recovered/Resolved]
  - Drug interaction [Recovered/Resolved]
  - Anaemia [Recovered/Resolved]
  - Thrombocytopenia [Recovered/Resolved]
  - Contraindicated product administered [Recovered/Resolved]
  - Toxicity to various agents [Recovered/Resolved]
  - Haematotoxicity [Recovered/Resolved]
  - Stomatitis [Recovered/Resolved]
  - Diarrhoea [Recovered/Resolved]
  - Gastrointestinal toxicity [Recovered/Resolved]
  - Dysphagia [Recovered/Resolved]
  - Clostridium difficile infection [Recovered/Resolved]
  - Alopecia [Recovered/Resolved]
  - Labelled drug-drug interaction medication error [Recovered/Resolved]

NARRATIVE: CASE EVENT DATE: 20180104
